FAERS Safety Report 13412910 (Version 2)
Quarter: 2017Q2

REPORT INFORMATION
  Report Type: Spontaneous
  Country: US (occurrence: US)
  Receive Date: 20170406
  Receipt Date: 20170607
  Transmission Date: 20170830
  Serious: Yes (Hospitalization)
  Sender: FDA-Public Use
  Company Number: US-JNJFOC-20170327958

PATIENT
  Sex: Male
  Weight: 68.04 kg

DRUGS (6)
  1. DEPAKOTE [Concomitant]
     Active Substance: DIVALPROEX SODIUM
     Route: 048
     Dates: start: 2013
  2. RISPERDAL [Suspect]
     Active Substance: RISPERIDONE
     Indication: SCHIZOPHRENIA
     Dosage: STARTED 20 YEARS AGO
     Route: 048
     Dates: start: 1997
  3. RISPERDAL [Suspect]
     Active Substance: RISPERIDONE
     Indication: SCHIZOPHRENIA
     Dosage: 20 YEARS AGO; 8 MG
     Route: 048
     Dates: start: 2002
  4. COGENTIN [Concomitant]
     Active Substance: BENZTROPINE MESYLATE
     Route: 048
     Dates: start: 2010
  5. REMERON [Concomitant]
     Active Substance: MIRTAZAPINE
     Route: 048
     Dates: start: 2013
  6. DEPAKOTE [Concomitant]
     Active Substance: DIVALPROEX SODIUM
     Dosage: IN THE MORNING
     Route: 048
     Dates: start: 2013

REACTIONS (7)
  - Cerebrovascular accident [Unknown]
  - Breast enlargement [Not Recovered/Not Resolved]
  - Hallucination [Unknown]
  - Blood prolactin increased [Not Recovered/Not Resolved]
  - Dry mouth [Unknown]
  - Dyskinesia [Not Recovered/Not Resolved]
  - Incorrect dose administered [Unknown]

NARRATIVE: CASE EVENT DATE: 1997
